FAERS Safety Report 8490778-2 (Version None)
Quarter: 2012Q3

REPORT INFORMATION
  Report Type: 
  Country: None (occurrence: None)
  Receive Date: 20120706
  Receipt Date: 20120627
  Transmission Date: 20120928
  Serious: Yes (Hospitalization)
  Sender: FDA-Public Use
  Company Number: US-BIOGENIDEC-2012BI000899

PATIENT
  Sex: Female

DRUGS (2)
  1. AVONEX [Suspect]
     Indication: MULTIPLE SCLEROSIS
     Route: 030
     Dates: start: 19990901, end: 20040801
  2. AVONEX [Suspect]
     Route: 030
     Dates: start: 20040801, end: 20120101

REACTIONS (4)
  - MULTIPLE SCLEROSIS [None]
  - ANAEMIA [None]
  - POST PROCEDURAL COMPLICATION [None]
  - ARTHROPATHY [None]
